FAERS Safety Report 7705804-5 (Version None)
Quarter: 2011Q3

REPORT INFORMATION
  Report Type: 
  Country: None (occurrence: None)
  Receive Date: 20110824
  Receipt Date: 20110824
  Transmission Date: 20111222
  Serious: Yes (Hospitalization)
  Sender: FDA-Public Use
  Company Number: None

PATIENT
  Age: 63 Year
  Sex: Male

DRUGS (1)
  1. INTRON A [Suspect]
     Indication: RENAL CELL CARCINOMA
     Route: 058

REACTIONS (4)
  - DECREASED APPETITE [None]
  - CONFUSIONAL STATE [None]
  - PYREXIA [None]
  - ASTHENIA [None]
